FAERS Safety Report 9296296 (Version 2)
Quarter: 2013Q2

REPORT INFORMATION
  Report Type: Spontaneous
  Country: GR (occurrence: None)
  Receive Date: 20130514
  Receipt Date: 20130524
  Transmission Date: 20140414
  Serious: Yes (Other)
  Sender: FDA-Public Use
  Company Number: GER/GRE/13/0029514

PATIENT
  Age: 34 Year
  Sex: Female

DRUGS (6)
  1. CLOPIDOGREL (CLOPIDOGREL) [Suspect]
     Indication: PRODUCT USED FOR UNKNOWN INDICATION
  2. CLOPIDOGREL (CLOPIDOGREL) [Suspect]
     Indication: THROMBOSIS
  3. OMEPRAZOLE (OMEPRAZOLE) [Suspect]
     Indication: PRODUCT USED FOR UNKNOWN INDICATION
  4. PRASUGREL (PRASUGREL) [Suspect]
     Indication: PRODUCT USED FOR UNKNOWN INDICATION
  5. INSULIN (INSULIN HUMAN) [Concomitant]
  6. ERYTHROPOIETIN (ERYTHROPOIETIN) [Concomitant]

REACTIONS (2)
  - Platelet function test abnormal [None]
  - Drug interaction [None]
